FAERS Safety Report 9522238 (Version 1)
Quarter: 2013Q3

REPORT INFORMATION
  Report Type: Spontaneous
  Country: US (occurrence: US)
  Receive Date: 20130913
  Receipt Date: 20130913
  Transmission Date: 20140515
  Serious: No
  Sender: FDA-Public Use
  Company Number: US-009507513-1309USA005421

PATIENT
  Age: 18 Year
  Sex: Female

DRUGS (3)
  1. NEXPLANON [Suspect]
     Indication: CONTRACEPTION
     Dosage: UNK
     Route: 059
     Dates: start: 20121217
  2. TYLENOL [Concomitant]
     Dosage: UNK UNK, PRN
  3. ADVIL [Concomitant]
     Dosage: UNK, PRN

REACTIONS (7)
  - Amenorrhoea [Unknown]
  - Implant site pain [Unknown]
  - Implant site pruritus [Unknown]
  - Device breakage [Unknown]
  - Back pain [Unknown]
  - Pelvic pain [Unknown]
  - Product quality issue [Unknown]
